FAERS Safety Report 14380243 (Version 3)
Quarter: 2018Q1

REPORT INFORMATION
  Report Type: Spontaneous
  Country: CH (occurrence: CH)
  Receive Date: 20180112
  Receipt Date: 20180322
  Transmission Date: 20180509
  Serious: Yes (Other)
  Sender: FDA-Public Use
  Company Number: CH-ROCHE-2051523

PATIENT
  Age: 71 Year
  Sex: Female
  Weight: 75 kg

DRUGS (11)
  1. XELODA [Suspect]
     Active Substance: CAPECITABINE
     Indication: BREAST CANCER METASTATIC
     Route: 048
     Dates: start: 20171128, end: 20171130
  2. NAVELBINE [Concomitant]
     Active Substance: VINORELBINE TARTRATE
     Indication: BREAST CANCER METASTATIC
     Route: 065
     Dates: start: 201701, end: 201702
  3. HERCEPTIN [Suspect]
     Active Substance: TRASTUZUMAB
     Dosage: IN COMBINATION WITH CAPECITABINE
     Route: 042
     Dates: start: 2017
  4. XELODA [Suspect]
     Active Substance: CAPECITABINE
     Route: 048
     Dates: start: 20171211, end: 20171211
  5. TAXOL [Concomitant]
     Active Substance: PACLITAXEL
     Indication: BREAST CANCER METASTATIC
     Route: 065
     Dates: start: 201301, end: 201307
  6. LETROZOLE. [Concomitant]
     Active Substance: LETROZOLE
     Indication: BREAST CANCER METASTATIC
     Route: 065
     Dates: start: 201402, end: 201404
  7. TAXOL [Concomitant]
     Active Substance: PACLITAXEL
     Route: 065
     Dates: start: 201703, end: 201705
  8. HERCEPTIN [Suspect]
     Active Substance: TRASTUZUMAB
     Indication: BREAST CANCER METASTATIC
     Dosage: IN COMBINATION WITH PACLITAXEL
     Route: 042
     Dates: start: 201301
  9. KADCYLA [Concomitant]
     Active Substance: ADO-TRASTUZUMAB EMTANSINE
     Route: 065
     Dates: start: 201607, end: 201701
  10. NEXIUM [Concomitant]
     Active Substance: ESOMEPRAZOLE MAGNESIUM
     Indication: DYSPEPSIA
     Route: 048
  11. COVERSUM [Concomitant]
     Active Substance: PERINDOPRIL
     Indication: HYPERTENSION
     Route: 048

REACTIONS (2)
  - Nausea [Recovered/Resolved]
  - Angina pectoris [Recovered/Resolved]

NARRATIVE: CASE EVENT DATE: 20171129
